FAERS Safety Report 5809337-2 (Version None)
Quarter: 2008Q3

REPORT INFORMATION
  Report Type: 
  Country: None (occurrence: None)
  Receive Date: 20080714
  Receipt Date: 20080702
  Transmission Date: 20090109
  Serious: Yes (Other)
  Sender: FDA-Public Use
  Company Number: PHHY2008GB11755

PATIENT
  Sex: Female

DRUGS (3)
  1. GLEEVEC [Suspect]
     Indication: BLAST CRISIS IN MYELOGENOUS LEUKAEMIA
     Dosage: 400 MG, QD
     Route: 048
     Dates: start: 20080404
  2. GLEEVEC [Suspect]
     Dosage: 600 MG, QD
     Route: 048
     Dates: end: 20080518
  3. TASIGNA [Suspect]

REACTIONS (5)
  - ASPIRATION PLEURAL CAVITY [None]
  - FLUID RETENTION [None]
  - HEPATOMEGALY [None]
  - PERICARDIAL EFFUSION [None]
  - PLEURAL EFFUSION [None]
